FAERS Safety Report 15240723 (Version 1)
Quarter: 2018Q3

REPORT INFORMATION
  Report Type: Spontaneous
  Country: JP (occurrence: JP)
  Receive Date: 20180804
  Receipt Date: 20180804
  Transmission Date: 20181010
  Serious: Yes (Other)
  Sender: FDA-Public Use
  Company Number: JP-SA-2018SA205636

PATIENT
  Age: 76 Year
  Sex: Female

DRUGS (1)
  1. ZOLPIDEM TARTRATE. [Suspect]
     Active Substance: ZOLPIDEM TARTRATE
     Indication: PRODUCT USED FOR UNKNOWN INDICATION
     Dosage: 32 DF, 1X
     Route: 048
     Dates: start: 20180722

REACTIONS (5)
  - Vomiting [Unknown]
  - Intentional overdose [Unknown]
  - Somnolence [Recovered/Resolved]
  - Blood pressure decreased [Unknown]
  - Suicide attempt [Unknown]

NARRATIVE: CASE EVENT DATE: 20180722
